FAERS Safety Report 22899491 (Version 2)
Quarter: 2023Q4

REPORT INFORMATION
  Report Type: Spontaneous
  Country: GB (occurrence: GB)
  Receive Date: 20230904
  Receipt Date: 20231004
  Transmission Date: 20240110
  Serious: Yes (Hospitalization, Other)
  Sender: FDA-Public Use
  Company Number: GB-TAKEDA-2023TUS006618

PATIENT
  Age: 74 Year
  Sex: Female

DRUGS (3)
  1. APIXABAN [Suspect]
     Active Substance: APIXABAN
     Indication: Product used for unknown indication
     Dosage: UNK;
     Route: 065
  2. REPLAGAL [Suspect]
     Active Substance: AGALSIDASE ALFA
     Indication: Fabry^s disease
     Dosage: 14 MILLIGRAM, Q2WEEKS
     Route: 050
  3. REPLAGAL [Suspect]
     Active Substance: AGALSIDASE ALFA
     Dosage: 14 MILLIGRAM, Q2WEEKS
     Route: 050
     Dates: start: 20120423

REACTIONS (19)
  - Deep vein thrombosis [Unknown]
  - Pulmonary embolism [Unknown]
  - Blood pressure decreased [Unknown]
  - Depression [Unknown]
  - Decreased appetite [Unknown]
  - Fatigue [Unknown]
  - Food poisoning [Unknown]
  - Gastroenteritis [Unknown]
  - Infection [Unknown]
  - Illness [Unknown]
  - Nausea [Unknown]
  - Sepsis [Unknown]
  - Syncope [Unknown]
  - Tachycardia [Unknown]
  - Device occlusion [Unknown]
  - Contusion [Unknown]
  - Head injury [Unknown]
  - Hypotension [Unknown]
  - Pain [Unknown]

NARRATIVE: CASE EVENT DATE: 20230214
